FAERS Safety Report 7752691-5 (Version None)
Quarter: 2011Q3

REPORT INFORMATION
  Report Type: 
  Country: None (occurrence: None)
  Receive Date: 20110915
  Receipt Date: 20110908
  Transmission Date: 20111222
  Serious: Yes (Hospitalization)
  Sender: FDA-Public Use
  Company Number: FR-PFIZER INC-2011210795

PATIENT
  Age: 59 Year
  Sex: Male

DRUGS (13)
  1. PREVISCAN [Interacting]
     Dosage: 1.5 DF, 1X/DAY
     Dates: start: 20110701, end: 20110727
  2. LANTHANUM CARBONATE [Concomitant]
     Dosage: 1000 MG, 3X/DAY
     Dates: start: 20100501
  3. NICOBION [Concomitant]
     Dosage: 500 MG, 2X/DAY
     Dates: start: 20100501
  4. RENAGEL [Concomitant]
     Dosage: 800 MG, 1X/DAY
     Dates: start: 20090101
  5. AVODART [Concomitant]
     Dosage: 0.5 MG, 1X/DAY
     Dates: start: 20090101
  6. VFEND [Suspect]
     Indication: BRONCHOPULMONARY ASPERGILLOSIS
     Dosage: 200 MG, 2X/DAY
     Route: 048
     Dates: start: 20110711
  7. APROVEL [Concomitant]
     Dosage: 150 MG, 2X/DAY
     Dates: start: 20080101
  8. EZETIMIBE/SIMVASTATIN [Concomitant]
     Dosage: 0.5 DF, 1X/DAY
     Dates: start: 20080101
  9. LERCANIDIPINE [Concomitant]
     Dosage: 2 DF PER DAY
     Dates: start: 20090101
  10. TENORMIN [Concomitant]
     Dosage: 25 MG, 1X/DAY
     Dates: start: 20101201
  11. PLAVIX [Concomitant]
     Dosage: 75 MG, 1X/DAY
     Dates: start: 20090101
  12. PREVISCAN [Interacting]
     Dosage: 0.75 DF, 1X/DAY
     Route: 048
     Dates: start: 20090101, end: 20110701
  13. LASIX [Concomitant]
     Dosage: 500 MG, 2X/DAY
     Dates: start: 20080101

REACTIONS (5)
  - ANAEMIA [None]
  - DRUG INTERACTION [None]
  - INTERNATIONAL NORMALISED RATIO INCREASED [None]
  - EPISTAXIS [None]
  - HAEMATOCHEZIA [None]
